FAERS Safety Report 21328287 (Version 2)
Quarter: 2022Q4

REPORT INFORMATION
  Report Type: Report from Study
  Country: US (occurrence: US)
  Receive Date: 20220913
  Receipt Date: 20221220
  Transmission Date: 20230113
  Serious: Yes (Other)
  Sender: FDA-Public Use
  Company Number: US-ABBVIE-22K-163-4537351-00

PATIENT
  Age: 65 Year
  Sex: Female
  Weight: 134 kg

DRUGS (5)
  1. SKYRIZI [Suspect]
     Active Substance: RISANKIZUMAB-RZAA
     Indication: Psoriasis
     Route: 058
  2. ANASTROZOLE [Concomitant]
     Active Substance: ANASTROZOLE
     Indication: Product used for unknown indication
  3. PFIZER-BIONTECH COVID-19 VACCINE [Concomitant]
     Active Substance: TOZINAMERAN
     Indication: COVID-19 immunisation
     Dosage: TIME INTERVAL: 1 TOTAL
     Route: 030
     Dates: start: 20210319, end: 20210319
  4. PFIZER-BIONTECH COVID-19 VACCINE [Concomitant]
     Active Substance: TOZINAMERAN
     Indication: COVID-19 immunisation
     Dosage: TIME INTERVAL: 1 TOTAL
     Route: 030
     Dates: start: 20210409, end: 20210409
  5. PFIZER-BIONTECH COVID-19 VACCINE [Concomitant]
     Active Substance: TOZINAMERAN
     Indication: COVID-19 immunisation
     Dosage: TIME INTERVAL: 1 TOTAL
     Route: 030
     Dates: start: 20210821, end: 20210821

REACTIONS (31)
  - Loss of consciousness [Recovered/Resolved]
  - Obesity [Recovered/Resolved]
  - Chronic kidney disease [Recovered/Resolved]
  - Blood glucose decreased [Unknown]
  - Chest pain [Recovered/Resolved]
  - Upper limb fracture [Recovered/Resolved]
  - Type V hyperlipidaemia [Unknown]
  - Head injury [Unknown]
  - Hypothyroidism [Recovered/Resolved]
  - Concussion [Unknown]
  - Depression [Recovered/Resolved]
  - Tooth loss [Unknown]
  - Hypertensive heart disease [Recovered/Resolved]
  - Fall [Unknown]
  - Mammogram abnormal [Recovered/Resolved]
  - Hepatic cirrhosis [Recovered/Resolved]
  - Arthralgia [Recovered/Resolved]
  - Exposure to SARS-CoV-2 [Recovered/Resolved]
  - Post concussion syndrome [Recovered/Resolved]
  - Hypoventilation [Recovered/Resolved]
  - Iron deficiency anaemia [Recovered/Resolved]
  - Atrial tachycardia [Recovered/Resolved]
  - Chronic kidney disease [Recovered/Resolved]
  - Cerebrovascular accident [Recovered/Resolved]
  - Lymphoedema [Recovered/Resolved]
  - Neuropathy peripheral [Recovered/Resolved]
  - Mass [Recovered/Resolved]
  - Chronic kidney disease [Recovered/Resolved]
  - Cutaneous T-cell lymphoma [Recovered/Resolved]
  - Essential hypertension [Unknown]
  - Cardiac failure [Recovered/Resolved]

NARRATIVE: CASE EVENT DATE: 20190412
